FAERS Safety Report 8921923 (Version 1)
Quarter: 2012Q4

REPORT INFORMATION
  Report Type: Spontaneous
  Country: US (occurrence: None)
  Receive Date: 20121119
  Receipt Date: 20121119
  Transmission Date: 20130627
  Serious: Yes (Other)
  Sender: FDA-Public Use
  Company Number: None

PATIENT
  Sex: Male
  Weight: 68.95 kg

DRUGS (1)
  1. RISPERIDONE [Suspect]

REACTIONS (3)
  - Aggression [None]
  - Product substitution issue [None]
  - Aggression [None]
